FAERS Safety Report 10427623 (Version 1)
Quarter: 2014Q3

REPORT INFORMATION
  Report Type: Spontaneous
  Country: US (occurrence: None)
  Receive Date: 20140902
  Receipt Date: 20140902
  Transmission Date: 20150326
  Serious: No
  Sender: FDA-Public Use
  Company Number: None

PATIENT
  Age: 73 Year
  Sex: Female
  Weight: 77.11 kg

DRUGS (1)
  1. AMLODIPINE [Suspect]
     Active Substance: AMLODIPINE BESYLATE
     Indication: HYPERTENSION
     Route: 048

REACTIONS (8)
  - Joint swelling [None]
  - Fatigue [None]
  - Myalgia [None]
  - Dizziness [None]
  - Arthropathy [None]
  - Pain in extremity [None]
  - Hypoaesthesia [None]
  - Amnesia [None]

NARRATIVE: CASE EVENT DATE: 20140825
